FAERS Safety Report 7076453-X (Version None)
Quarter: 2010Q4

REPORT INFORMATION
  Report Type: 
  Country: None (occurrence: None)
  Receive Date: 20101101
  Receipt Date: 20101018
  Transmission Date: 20110411
  Serious: Yes (Hospitalization, Other)
  Sender: FDA-Public Use
  Company Number: CH-ELI_LILLY_AND_COMPANY-CH201010004891

PATIENT
  Age: 53 Year
  Sex: Female

DRUGS (16)
  1. FLUCTINE [Suspect]
     Dosage: 20 MG, DAILY (1/D)
     Route: 048
     Dates: start: 20091001, end: 20091001
  2. FLUCTINE [Suspect]
     Dosage: 40 MG, DAILY (1/D)
     Route: 048
     Dates: start: 20091001, end: 20100601
  3. FLUCTINE [Suspect]
     Dosage: 60 MG, DAILY (1/D)
     Route: 048
     Dates: start: 20100602, end: 20100628
  4. FLUCTINE [Suspect]
     Dosage: 80 MG, DAILY (1/D)
     Route: 048
     Dates: start: 20100629, end: 20100713
  5. IMOVANE [Concomitant]
     Dosage: 7.5 MG, DAILY (1/D)
     Route: 048
     Dates: end: 20100713
  6. CIMIFEMIN [Concomitant]
     Dosage: 13 MG, DAILY (1/D)
     Route: 048
     Dates: end: 20100713
  7. MST UNICONTINUS [Concomitant]
     Dosage: 140 MG, DAILY (1/D)
     Route: 048
     Dates: end: 20100713
  8. ACETYLCYSTEINE [Concomitant]
     Dosage: 600 MG, DAILY (1/D)
     Route: 048
     Dates: start: 20100622, end: 20100712
  9. LEVEMIR [Concomitant]
     Dosage: 12 IU, DAILY (1/D)
     Route: 058
     Dates: end: 20100713
  10. NOVORAPID [Concomitant]
     Dosage: UNK UNK, DAILY (1/D)
     Route: 058
     Dates: end: 20100713
  11. LYRICA [Concomitant]
     Dosage: 25 MG, DAILY (1/D)
     Route: 048
     Dates: start: 20100603, end: 20100604
  12. LYRICA [Concomitant]
     Dosage: 75 MG, DAILY (1/D)
     Route: 048
     Dates: start: 20100605, end: 20100609
  13. TEMESTA [Concomitant]
     Dosage: 2 MG, DAILY (1/D)
     Route: 048
     Dates: start: 20100528, end: 20100608
  14. TEMESTA [Concomitant]
     Dosage: 1 MG, DAILY (1/D)
     Route: 048
     Dates: start: 20100609
  15. IRFEN [Concomitant]
     Dosage: 600 MG, DAILY (1/D)
     Route: 048
     Dates: start: 20100528, end: 20100609
  16. NEXIUM [Concomitant]
     Dosage: 20 MG, DAILY (1/D)
     Route: 048
     Dates: start: 20100528, end: 20100609

REACTIONS (15)
  - ATRIOVENTRICULAR BLOCK SECOND DEGREE [None]
  - BLOOD GLUCOSE ABNORMAL [None]
  - BLOOD GLUCOSE INCREASED [None]
  - BRONCHITIS [None]
  - C-REACTIVE PROTEIN INCREASED [None]
  - DELUSION [None]
  - ELECTROCARDIOGRAM QT PROLONGED [None]
  - GRAND MAL CONVULSION [None]
  - HALLUCINATION, VISUAL [None]
  - HOSPITALISATION [None]
  - HYPONATRAEMIA [None]
  - NAUSEA [None]
  - TORSADE DE POINTES [None]
  - VENTRICULAR FIBRILLATION [None]
  - VOMITING [None]
